FAERS Safety Report 7509174-7 (Version None)
Quarter: 2011Q2

REPORT INFORMATION
  Report Type: 
  Country: None (occurrence: None)
  Receive Date: 20110527
  Receipt Date: 20101012
  Transmission Date: 20111010
  Serious: No
  Sender: FDA-Public Use
  Company Number: US-MYLANLABS-2010S1018915

PATIENT
  Age: 57 Year
  Sex: Female
  Weight: 54.43 kg

DRUGS (5)
  1. AMITRIPTYLINE HCL [Suspect]
     Indication: INSOMNIA
     Route: 048
     Dates: start: 20101007, end: 20101007
  2. PROTONIX [Concomitant]
     Indication: GASTRIC ULCER
  3. CELEXA [Concomitant]
     Indication: ANXIETY
     Dosage: USING 30MG TABLET
     Dates: start: 20090101
  4. ENALAPRIL MALEATE [Concomitant]
     Indication: HYPERTENSION
     Dosage: USING 2 X 40MG TABLET
  5. AMITRIPTYLINE HCL [Suspect]
     Route: 048
     Dates: start: 20101009

REACTIONS (2)
  - DYSKINESIA [None]
  - FEELING ABNORMAL [None]
